FAERS Safety Report 4425864-7 (Version None)
Quarter: 2004Q3

REPORT INFORMATION
  Report Type: 
  Country: None (occurrence: None)
  Receive Date: 20040811
  Receipt Date: 20040803
  Transmission Date: 20050211
  Serious: Yes (Other)
  Sender: FDA-Public Use
  Company Number: 04-00465

PATIENT
  Age: 63 Year
  Sex: Female

DRUGS (5)
  1. HYDROCHLOROTHIAZDE TAB [Suspect]
     Indication: HYPERTENSION
     Dosage: 25MG, ONCE DAILY,
  2. SERTRALINE HCL [Suspect]
     Indication: DEPRESSION
     Dosage: 50MG, ONCE DAILY,
  3. LORAZEPAM [Concomitant]
  4. ALBUTEROL [Concomitant]
  5. IBUPROFEN [Concomitant]

REACTIONS (10)
  - BLOOD POTASSIUM DECREASED [None]
  - CONFUSIONAL STATE [None]
  - CONVULSION [None]
  - HEADACHE [None]
  - HYPERTENSION [None]
  - HYPONATRAEMIA [None]
  - INAPPROPRIATE ANTIDIURETIC HORMONE SECRETION [None]
  - LETHARGY [None]
  - MENTAL STATUS CHANGES [None]
  - URINE OSMOLARITY INCREASED [None]
